FAERS Safety Report 18503617 (Version 2)
Quarter: 2021Q1

REPORT INFORMATION
  Report Type: Spontaneous
  Country: US (occurrence: US)
  Receive Date: 20201113
  Receipt Date: 20210219
  Transmission Date: 20210419
  Serious: Yes (Other)
  Sender: FDA-Public Use
  Company Number: US-GILEAD-2020-0502221

PATIENT
  Age: 30 Year
  Sex: Female

DRUGS (1)
  1. TRUVADA [Suspect]
     Active Substance: EMTRICITABINE\TENOFOVIR DISOPROXIL FUMARATE
     Indication: PROPHYLAXIS AGAINST HIV INFECTION
     Dosage: UNK
     Route: 048
     Dates: start: 20150514, end: 20150715

REACTIONS (6)
  - Multiple fractures [Recovered/Resolved]
  - Skeletal injury [Unknown]
  - Renal injury [Unknown]
  - Multiple fractures [Not Recovered/Not Resolved]
  - Tooth injury [Unknown]
  - Multiple fractures [Recovered/Resolved]

NARRATIVE: CASE EVENT DATE: 20170820
